FAERS Safety Report 10747749 (Version 2)
Quarter: 2015Q1

REPORT INFORMATION
  Report Type: Spontaneous
  Country: US (occurrence: US)
  Receive Date: 20150129
  Receipt Date: 20150323
  Transmission Date: 20150721
  Serious: No
  Sender: FDA-Public Use
  Company Number: US-PFIZER INC-2015031778

PATIENT
  Age: 55 Year
  Sex: Male
  Weight: 111 kg

DRUGS (17)
  1. MERREM [Concomitant]
     Active Substance: MEROPENEM
     Dosage: UNK (2 SOLUTION RECONSTITUTED)
  2. SIMVASTATIN. [Concomitant]
     Active Substance: SIMVASTATIN
     Dosage: 40 MG, 3X/DAY
     Route: 048
  3. LEVEMIR [Concomitant]
     Active Substance: INSULIN DETEMIR
     Dosage: 25 IU, 2X/DAY
     Route: 058
  4. MORPHINE SULPHATE [Concomitant]
     Active Substance: MORPHINE SULFATE
     Dosage: 30 MG, AS NEEDED (AS NEEDED EVERY 4 HRS)
  5. TEFLARO [Concomitant]
     Active Substance: CEFTAROLINE FOSAMIL
     Dosage: 600 MG, UNK (SOLUTION RECONSTITUTED AS DIRECTED)
  6. MORPHINE [Concomitant]
     Active Substance: MORPHINE
     Indication: PAIN
     Dosage: 200 MG, 4X/DAY
  7. ASPIRIN. [Concomitant]
     Active Substance: ASPIRIN
     Dosage: 81 MG, 1X/DAY
  8. LEVEMIR [Concomitant]
     Active Substance: INSULIN DETEMIR
     Dosage: 20 IU, 1X/DAY
  9. GABAPENTIN. [Suspect]
     Active Substance: GABAPENTIN
     Indication: DIABETIC NEUROPATHY
     Dosage: 800 MG, 3X/DAY
     Dates: start: 20150114
  10. HUMALOG [Concomitant]
     Active Substance: INSULIN LISPRO
     Dosage: 12 IU, DAILY
  11. ALPRAZOLAM. [Concomitant]
     Active Substance: ALPRAZOLAM
     Dosage: 2 MG, 2X/DAY
  12. DAPTOMYCIN. [Concomitant]
     Active Substance: DAPTOMYCIN
     Dosage: 850 MG, UNK (850 MG SOLUTION RECONSTITUTED)
  13. LIDOCAINE. [Concomitant]
     Active Substance: LIDOCAINE
     Dosage: UNK (2 % GEL AS DIRECTED)
  14. BACTROBAN [Concomitant]
     Active Substance: MUPIROCIN\MUPIROCIN CALCIUM
     Dosage: UNK, 3X/DAY (2 % CREAM 1 APPLICATION TO AFFECTED AREA THREE TIMES A DAY)
  15. ZANTAC [Concomitant]
     Active Substance: RANITIDINE HYDROCHLORIDE
     Dosage: 150 MG, 2X/DAY
     Route: 048
  16. SIMVASTATIN. [Concomitant]
     Active Substance: SIMVASTATIN
     Indication: BLOOD CHOLESTEROL INCREASED
     Dosage: 40 MG, DAILY (1 TABLET IN THE EVENING ONCE A DAY)
  17. XANAX [Concomitant]
     Active Substance: ALPRAZOLAM
     Indication: SEDATION
     Dosage: 2 MG, 2X/DAY

REACTIONS (4)
  - Blister [Not Recovered/Not Resolved]
  - Skin ulcer [Not Recovered/Not Resolved]
  - Rash [Not Recovered/Not Resolved]
  - Drug ineffective [Not Recovered/Not Resolved]

NARRATIVE: CASE EVENT DATE: 20150114
